FAERS Safety Report 13276071 (Version 1)
Quarter: 2017Q1

REPORT INFORMATION
  Report Type: Spontaneous
  Country: US (occurrence: US)
  Receive Date: 20170228
  Receipt Date: 20170228
  Transmission Date: 20170428
  Serious: Yes (Disabling, Other)
  Sender: FDA-Public Use
  Company Number: US-PROCTER_AND_GAMBLE-GS17018900

PATIENT
  Age: 79 Year
  Sex: Female

DRUGS (1)
  1. ZZZQUIL NIGHTTIME SLEEP-AID [Suspect]
     Active Substance: DIPHENHYDRAMINE HYDROCHLORIDE
     Indication: INSOMNIA
     Dosage: 1X AT NIGHT, NOT EVERY NIGHT AND LESS THAN A CAPFUL
     Route: 048

REACTIONS (9)
  - Oral pain [Not Recovered/Not Resolved]
  - Sensitivity of teeth [Not Recovered/Not Resolved]
  - Oropharyngeal pain [Not Recovered/Not Resolved]
  - Toothache [Recovered/Resolved]
  - Product use issue [Unknown]
  - Chemical burn of respiratory tract [Not Recovered/Not Resolved]
  - Dental caries [Recovered/Resolved]
  - Chemical burn of skin [Not Recovered/Not Resolved]
  - Chemical burn of gastrointestinal tract [Not Recovered/Not Resolved]
